FAERS Safety Report 4616618-7 (Version None)
Quarter: 2005Q1

REPORT INFORMATION
  Report Type: 
  Country: None (occurrence: None)
  Receive Date: 20050318
  Receipt Date: 20050316
  Transmission Date: 20050727
  Serious: Yes (Death)
  Sender: FDA-Public Use
  Company Number: 211289

PATIENT
  Age: 75 Year
  Sex: Male

DRUGS (1)
  1. AVASTIN [Suspect]

REACTIONS (3)
  - GANGRENE [None]
  - PROCEDURAL SITE REACTION [None]
  - SEPTIC SHOCK [None]
